FAERS Safety Report 13487319 (Version 1)
Quarter: 2017Q2

REPORT INFORMATION
  Report Type: Spontaneous
  Country: US (occurrence: US)
  Receive Date: 20170426
  Receipt Date: 20170426
  Transmission Date: 20170830
  Serious: No
  Sender: FDA-Public Use
  Company Number: US-ALKERMES INC.-ALK-2016-001886

PATIENT
  Age: 42 Year
  Sex: Male

DRUGS (19)
  1. ANTABUSE [Suspect]
     Active Substance: DISULFIRAM
     Indication: ALCOHOLISM
     Route: 065
  2. OMEPRAZOLE. [Concomitant]
     Active Substance: OMEPRAZOLE
     Indication: PRODUCT USED FOR UNKNOWN INDICATION
     Dosage: UNK
  3. METOPROLOL. [Concomitant]
     Active Substance: METOPROLOL
     Indication: PRODUCT USED FOR UNKNOWN INDICATION
     Dosage: UNK
  4. SEROQUEL [Concomitant]
     Active Substance: QUETIAPINE FUMARATE
     Indication: PRODUCT USED FOR UNKNOWN INDICATION
     Dosage: UNK
  5. BETAMETHASONE VALERATE. [Concomitant]
     Active Substance: BETAMETHASONE VALERATE
     Indication: PRODUCT USED FOR UNKNOWN INDICATION
     Dosage: UNK
  6. VENLAFAXINE [Concomitant]
     Active Substance: VENLAFAXINE HYDROCHLORIDE
     Indication: PRODUCT USED FOR UNKNOWN INDICATION
     Dosage: UNK
  7. BACTROBAN [Concomitant]
     Active Substance: MUPIROCIN\MUPIROCIN CALCIUM
     Indication: PRODUCT USED FOR UNKNOWN INDICATION
     Dosage: UNK
  8. LITHIUM. [Concomitant]
     Active Substance: LITHIUM
     Indication: PRODUCT USED FOR UNKNOWN INDICATION
     Dosage: UNK
  9. ATIVAN [Concomitant]
     Active Substance: LORAZEPAM
     Indication: PRODUCT USED FOR UNKNOWN INDICATION
     Dosage: UNK
  10. TAMSULOSIN [Concomitant]
     Active Substance: TAMSULOSIN
     Indication: PRODUCT USED FOR UNKNOWN INDICATION
     Dosage: UNK
  11. NALTREXONE [Concomitant]
     Active Substance: NALTREXONE
     Indication: ALCOHOLISM
     Dosage: UNK
     Route: 048
  12. ALBUTEROL                          /00139501/ [Concomitant]
     Active Substance: ALBUTEROL
     Indication: PRODUCT USED FOR UNKNOWN INDICATION
     Dosage: UNK
  13. LEVOTHYROXINE. [Concomitant]
     Active Substance: LEVOTHYROXINE
     Indication: PRODUCT USED FOR UNKNOWN INDICATION
     Dosage: 75 ?G, UNK
     Route: 048
  14. KLOR-CON [Concomitant]
     Active Substance: POTASSIUM CHLORIDE
     Indication: PRODUCT USED FOR UNKNOWN INDICATION
     Dosage: UNK
  15. VENTOLIN [Concomitant]
     Active Substance: ALBUTEROL SULFATE
     Indication: PRODUCT USED FOR UNKNOWN INDICATION
     Dosage: UNK
  16. MVI [Concomitant]
     Active Substance: VITAMINS
     Indication: PRODUCT USED FOR UNKNOWN INDICATION
     Dosage: UNK
  17. MVI [Concomitant]
     Active Substance: VITAMINS
     Dosage: UNK
  18. VIVITROL [Suspect]
     Active Substance: NALTREXONE
     Indication: ALCOHOLISM
     Dosage: 380 MG, QMO
     Route: 030
     Dates: start: 20160708
  19. PRIMIDONE. [Concomitant]
     Active Substance: PRIMIDONE
     Indication: PRODUCT USED FOR UNKNOWN INDICATION
     Dosage: UNK

REACTIONS (4)
  - Angioedema [Recovered/Resolved]
  - Tachycardia [Recovered/Resolved]
  - Alcoholism [Unknown]
  - Swelling [Recovered/Resolved]

NARRATIVE: CASE EVENT DATE: 201607
